FAERS Safety Report 13162615 (Version 1)
Quarter: 2017Q1

REPORT INFORMATION
  Report Type: Spontaneous
  Country: FR (occurrence: FR)
  Receive Date: 20170130
  Receipt Date: 20170130
  Transmission Date: 20170428
  Serious: Yes (Hospitalization)
  Sender: FDA-Public Use
  Company Number: FR-SA-2017SA012935

PATIENT
  Age: 74 Year
  Sex: Male

DRUGS (1)
  1. IMMUCYST [Suspect]
     Active Substance: BACILLUS CALMETTE-GUERIN SUBSTRAIN CONNAUGHT LIVE ANTIGEN
     Indication: URINARY TRACT CARCINOMA IN SITU
     Route: 043
     Dates: start: 20160928, end: 20160928

REACTIONS (19)
  - Miliary pneumonia [Recovered/Resolved]
  - Hepatocellular injury [Unknown]
  - Cholestasis [Unknown]
  - Dyspnoea [Unknown]
  - Interstitial lung disease [Recovered/Resolved]
  - Cholelithiasis [Unknown]
  - Respiratory failure [Recovered/Resolved]
  - Inflammation [Unknown]
  - Granulomatous liver disease [Recovering/Resolving]
  - Hypocapnia [Unknown]
  - Hepatic steatosis [Unknown]
  - Palpitations [Unknown]
  - Splenomegaly [Unknown]
  - Hepatomegaly [Unknown]
  - Disseminated Bacillus Calmette-Guerin infection [Recovering/Resolving]
  - Pyrexia [Recovered/Resolved]
  - Dyspnoea exertional [Unknown]
  - Hypoxia [Unknown]
  - Portal hypertension [Unknown]

NARRATIVE: CASE EVENT DATE: 20161001
